FAERS Safety Report 4977264-9 (Version None)
Quarter: 2006Q2

REPORT INFORMATION
  Report Type: 
  Country: None (occurrence: None)
  Receive Date: 20060419
  Receipt Date: 20051123
  Transmission Date: 20061013
  Serious: Yes (Death)
  Sender: FDA-Public Use
  Company Number: US-MERCK-0511USA04397

PATIENT
  Age: 73 Year
  Sex: Female
  Weight: 89 kg

DRUGS (8)
  1. VIOXX [Suspect]
     Route: 048
     Dates: start: 19990101, end: 20000324
  2. ALEVE [Concomitant]
     Route: 065
  3. ADVIL [Concomitant]
     Route: 065
  4. MOTRIN [Concomitant]
     Route: 065
  5. ASPIRIN [Concomitant]
     Route: 065
  6. IBUPROFEN [Concomitant]
     Route: 065
  7. TYLENOL (CAPLET) [Concomitant]
     Route: 065
  8. EXCEDRIN IB [Concomitant]
     Route: 065

REACTIONS (2)
  - MYOCARDIAL INFARCTION [None]
  - PAIN [None]
